FAERS Safety Report 22397766 (Version 1)
Quarter: 2023Q2

REPORT INFORMATION
  Report Type: Spontaneous
  Country: KR (occurrence: KR)
  Receive Date: 20230602
  Receipt Date: 20230602
  Transmission Date: 20230722
  Serious: Yes (Hospitalization)
  Sender: FDA-Public Use
  Company Number: KR-ORGANON-O2305KOR003099

PATIENT
  Age: 88 Year
  Sex: Male
  Weight: 56 kg

DRUGS (7)
  1. COZAAR [Suspect]
     Active Substance: LOSARTAN POTASSIUM
     Dosage: 50 MILLIGRAM
     Route: 048
     Dates: start: 20090119
  2. ASPIRIN [Concomitant]
     Active Substance: ASPIRIN
     Indication: Cardiovascular disorder
     Dosage: 100 MILLIGRAM
     Route: 048
     Dates: start: 20090119
  3. ATORVASTATIN CALCIUM [Concomitant]
     Active Substance: ATORVASTATIN CALCIUM
     Dosage: 10 MILLIGRAM
     Route: 048
     Dates: start: 20090119
  4. DUTASTERIDE [Concomitant]
     Active Substance: DUTASTERIDE
     Indication: Benign prostatic hyperplasia
     Dosage: 1 FORMULATION
     Route: 048
     Dates: start: 20190304
  5. MIRABEGRON [Concomitant]
     Active Substance: MIRABEGRON
     Indication: Bladder disorder
     Dosage: 50 MILLIGRAM
     Route: 048
     Dates: start: 20160428
  6. SILODOSIN [Concomitant]
     Active Substance: SILODOSIN
     Indication: Micturition disorder
     Dosage: 8 MILLIGRAM
     Route: 048
     Dates: start: 20160211
  7. LAFUTIDINE [Concomitant]
     Active Substance: LAFUTIDINE
     Indication: Peptic ulcer
     Dosage: 10 MILLIGRAM
     Route: 048
     Dates: start: 20191121

REACTIONS (1)
  - Cholecystitis acute [Recovered/Resolved]

NARRATIVE: CASE EVENT DATE: 20200121
